FAERS Safety Report 5928585-4 (Version None)
Quarter: 2008Q3

REPORT INFORMATION
  Report Type: 
  Country: None (occurrence: None)
  Receive Date: 20080923
  Receipt Date: 20080310
  Transmission Date: 20090109
  Serious: Yes (Hospitalization)
  Sender: FDA-Public Use
  Company Number: WAES 0803USA01377

PATIENT
  Age: 80 Year
  Sex: Female

DRUGS (2)
  1. VYTORIN [Suspect]
     Dosage: UNK UNK PO
     Route: 048
  2. THERAPY UNSPECIFIED [Concomitant]

REACTIONS (1)
  - RHABDOMYOLYSIS [None]
